FAERS Safety Report 23395520 (Version 3)
Quarter: 2024Q1

REPORT INFORMATION
  Report Type: Report from Study
  Country: US (occurrence: US)
  Receive Date: 20240112
  Receipt Date: 20240209
  Transmission Date: 20240410
  Serious: Yes (Death, Other)
  Sender: FDA-Public Use
  Company Number: US-JNJFOC-20240127282

PATIENT
  Age: 6 Decade
  Sex: Male
  Weight: 146.19 kg

DRUGS (13)
  1. SPRAVATO [Suspect]
     Active Substance: ESKETAMINE
     Indication: Depression
     Dosage: 56 MG, 1 DOSE
     Dates: start: 20230605, end: 20230605
  2. SPRAVATO [Suspect]
     Active Substance: ESKETAMINE
     Dosage: 84 MG, 23 DOSES
     Dates: start: 20230606, end: 20231030
  3. CYMBALTA [Concomitant]
     Active Substance: DULOXETINE HYDROCHLORIDE
     Route: 065
  4. LITHIUM CARBONATE [Concomitant]
     Active Substance: LITHIUM CARBONATE
     Indication: Depression
     Route: 048
     Dates: start: 20230503, end: 20231030
  5. CAMPRAL [Concomitant]
     Active Substance: ACAMPROSATE CALCIUM
     Indication: Anxiety
     Dosage: 2 TABLETS, TWICE A DAY
     Route: 048
     Dates: start: 20230512, end: 20231030
  6. EFFEXOR [Concomitant]
     Active Substance: VENLAFAXINE HYDROCHLORIDE
     Indication: Depression
     Route: 048
     Dates: start: 20230918, end: 20231030
  7. EFFEXOR [Concomitant]
     Active Substance: VENLAFAXINE HYDROCHLORIDE
     Route: 048
     Dates: end: 20231030
  8. EFFEXOR [Concomitant]
     Active Substance: VENLAFAXINE HYDROCHLORIDE
     Route: 048
     Dates: start: 20231030
  9. CLONIDINE HYDROCHLORIDE [Concomitant]
     Active Substance: CLONIDINE HYDROCHLORIDE
     Indication: Anxiety
     Dosage: AS REQUIRED
     Route: 048
     Dates: start: 20231026, end: 20231030
  10. INDERAL [Concomitant]
     Active Substance: PROPRANOLOL HYDROCHLORIDE
     Route: 065
  11. REMERON [Concomitant]
     Active Substance: MIRTAZAPINE
     Indication: Depression
     Dosage: AT BED TIME
     Route: 048
     Dates: start: 20230616, end: 20231030
  12. PROPRANOLOL [Concomitant]
     Active Substance: PROPRANOLOL HYDROCHLORIDE
     Indication: Anxiety
     Dosage: AS NEEDED
     Route: 048
     Dates: start: 20230718, end: 20231030
  13. VRAYLAR [Concomitant]
     Active Substance: CARIPRAZINE
     Indication: Depression
     Route: 065

REACTIONS (6)
  - Accident [Fatal]
  - Head injury [Fatal]
  - Suicidal ideation [Unknown]
  - Depression [Not Recovered/Not Resolved]
  - Fall [Unknown]
  - Arthralgia [Unknown]

NARRATIVE: CASE EVENT DATE: 20230101
